FAERS Safety Report 23139466 (Version 1)
Quarter: 2023Q4

REPORT INFORMATION
  Report Type: Report from Study
  Country: IT (occurrence: IT)
  Receive Date: 20231102
  Receipt Date: 20231102
  Transmission Date: 20240110
  Serious: Yes (Hospitalization)
  Sender: FDA-Public Use
  Company Number: None

PATIENT
  Age: 67 Year
  Sex: Male

DRUGS (3)
  1. METFORMIN [Suspect]
     Active Substance: METFORMIN HYDROCHLORIDE
     Indication: Diabetes mellitus
     Dosage: THERAPEUTIC DOSE
     Route: 048
  2. COLCHICINE [Concomitant]
     Active Substance: COLCHICINE
     Dosage: THERAPEUTIC DOSE
     Route: 048
  3. IBUPROFEN [Concomitant]
     Active Substance: IBUPROFEN
     Dosage: 600 MILLIGRAM, Q8H (TID)
     Route: 048

REACTIONS (3)
  - Blood creatinine increased [Recovered/Resolved]
  - Metabolic acidosis [Recovered/Resolved]
  - Abdominal tenderness [Recovered/Resolved]

NARRATIVE: CASE EVENT DATE: 20230921
